FAERS Safety Report 5537836-X (Version None)
Quarter: 2007Q4

REPORT INFORMATION
  Report Type: 
  Country: None (occurrence: None)
  Receive Date: 20071207
  Receipt Date: 20071130
  Transmission Date: 20080405
  Serious: Yes (Other)
  Sender: FDA-Public Use
  Company Number: US-PFIZER INC-2007042911

PATIENT
  Sex: Male
  Weight: 90.7 kg

DRUGS (7)
  1. VIAGRA [Suspect]
     Indication: ERECTILE DYSFUNCTION
     Dates: start: 20010901, end: 20020201
  2. TERAZOSIN HCL [Concomitant]
  3. PENTOXIFYLLINE [Concomitant]
     Dates: start: 20020101
  4. DIGITEK [Concomitant]
     Dates: start: 20020201, end: 20020601
  5. KLOR-CON [Concomitant]
     Dates: start: 20020201, end: 20051001
  6. FUROSEMIDE [Concomitant]
     Dates: start: 20020201, end: 20051001
  7. HYDROCODONE BITARTRATE [Concomitant]
     Dates: start: 20020201, end: 20051101

REACTIONS (2)
  - BLINDNESS [None]
  - OPTIC ISCHAEMIC NEUROPATHY [None]
